FAERS Safety Report 22146515 (Version 1)
Quarter: 2023Q1

REPORT INFORMATION
  Report Type: Report from Study
  Country: IN (occurrence: IN)
  Receive Date: 20230328
  Receipt Date: 20230328
  Transmission Date: 20230418
  Serious: Yes (Other)
  Sender: FDA-Public Use
  Company Number: IN-SUN PHARMACEUTICAL INDUSTRIES LTD-2023R1-382204

PATIENT

DRUGS (1)
  1. TRAMADOL [Suspect]
     Active Substance: TRAMADOL
     Indication: Pain management
     Dosage: 100 MILLIGRAM, Q4H
     Route: 042

REACTIONS (4)
  - Premature baby [Unknown]
  - Small for dates baby [Unknown]
  - Neonatal respiratory distress [Unknown]
  - Foetal exposure during pregnancy [Unknown]
